FAERS Safety Report 7122865-5 (Version None)
Quarter: 2010Q4

REPORT INFORMATION
  Report Type: 
  Country: None (occurrence: None)
  Receive Date: 20101124
  Receipt Date: 20101118
  Transmission Date: 20110411
  Serious: Yes (Hospitalization, Other)
  Sender: FDA-Public Use
  Company Number: US-ABBOTT-10P-163-0686518-00

PATIENT
  Sex: Female
  Weight: 90.8 kg

DRUGS (22)
  1. HUMIRA [Suspect]
     Indication: RHEUMATOID ARTHRITIS
     Route: 058
     Dates: start: 20080801, end: 20090301
  2. HUMIRA [Suspect]
     Dates: start: 20091001, end: 20100328
  3. HUMIRA [Suspect]
     Dates: start: 20101113
  4. GLIPIZIDE [Concomitant]
     Indication: PRODUCT USED FOR UNKNOWN INDICATION
  5. DIOVAN [Concomitant]
     Indication: BLOOD PRESSURE
  6. SERTRALINE HYDROCHLORIDE [Concomitant]
     Indication: PRODUCT USED FOR UNKNOWN INDICATION
  7. ROPINIROLE [Concomitant]
     Indication: MUSCLE SPASMS
     Dosage: 1MG X 1-3 AS REQUIRED
  8. CELEBREX [Concomitant]
     Indication: PRODUCT USED FOR UNKNOWN INDICATION
     Dosage: 200MG X 1-2 AS REQUIRED
  9. LORA TAB [Concomitant]
     Indication: PRODUCT USED FOR UNKNOWN INDICATION
     Dosage: 1/2-7.5/500 TAB AS REQUIRED
  10. PROMETHAZINE [Concomitant]
     Indication: NAUSEA
  11. ZANTAC [Concomitant]
     Indication: GASTROOESOPHAGEAL REFLUX DISEASE
  12. PROAIR HFA [Concomitant]
     Indication: PRODUCT USED FOR UNKNOWN INDICATION
     Dosage: MDI, AS REQUIRED
  13. LANTUS [Concomitant]
     Indication: PRODUCT USED FOR UNKNOWN INDICATION
     Dosage: AT BEDTIME
  14. NOVOLOG [Concomitant]
     Indication: PRODUCT USED FOR UNKNOWN INDICATION
     Dosage: SLIDING SCALE
  15. SPIRIVA [Concomitant]
     Indication: PRODUCT USED FOR UNKNOWN INDICATION
     Dosage: 1 NIGHTLY
  16. VIT D [Concomitant]
     Indication: PRODUCT USED FOR UNKNOWN INDICATION
  17. CALCIUM [Concomitant]
     Indication: PRODUCT USED FOR UNKNOWN INDICATION
  18. TYLENOL (CAPLET) [Concomitant]
     Indication: PRODUCT USED FOR UNKNOWN INDICATION
  19. ACIDOPHILUS [Concomitant]
     Indication: PRODUCT USED FOR UNKNOWN INDICATION
  20. SYMBICORT [Concomitant]
     Indication: PRODUCT USED FOR UNKNOWN INDICATION
  21. GABAPENTIN [Concomitant]
     Indication: PRODUCT USED FOR UNKNOWN INDICATION
  22. CARDIZEM [Concomitant]
     Indication: PRODUCT USED FOR UNKNOWN INDICATION

REACTIONS (5)
  - ANKLE FRACTURE [None]
  - BLISTER [None]
  - CELLULITIS [None]
  - ESCHAR [None]
  - STAPHYLOCOCCAL INFECTION [None]
